FAERS Safety Report 8264218-2 (Version None)
Quarter: 2012Q2

REPORT INFORMATION
  Report Type: 
  Country: None (occurrence: None)
  Receive Date: 20120406
  Receipt Date: 20120326
  Transmission Date: 20120825
  Serious: Yes (Other)
  Sender: FDA-Public Use
  Company Number: CA-JNJFOC-20120312987

PATIENT
  Sex: Female
  Weight: 49 kg

DRUGS (3)
  1. REMICADE [Suspect]
     Route: 042
     Dates: start: 20120220
  2. PENTASA [Concomitant]
     Route: 048
  3. REMICADE [Suspect]
     Indication: CROHN'S DISEASE
     Route: 042
     Dates: start: 20120326

REACTIONS (4)
  - FLUSHING [None]
  - INFUSION RELATED REACTION [None]
  - THROAT TIGHTNESS [None]
  - VOMITING [None]
